FAERS Safety Report 19083133 (Version 1)
Quarter: 2021Q2

REPORT INFORMATION
  Report Type: Spontaneous
  Country: US (occurrence: US)
  Receive Date: 20210401
  Receipt Date: 20210401
  Transmission Date: 20210717
  Serious: Yes (Hospitalization)
  Sender: FDA-Public Use
  Company Number: US-DRREDDYS-USA/USA/21/0133756

PATIENT
  Age: 17 Year
  Sex: Male

DRUGS (4)
  1. ALTEPLASE. [Suspect]
     Active Substance: ALTEPLASE
     Indication: PULMONARY EMBOLISM
     Route: 042
  2. HEPARIN SODIUM. [Concomitant]
     Active Substance: HEPARIN SODIUM
     Indication: PULMONARY EMBOLISM
  3. ALTEPLASE. [Suspect]
     Active Substance: ALTEPLASE
     Dosage: TOTAL DOSE OF 1 MG/H
     Route: 042
  4. BIVALIRUDIN INJECTION [Suspect]
     Active Substance: BIVALIRUDIN
     Indication: PULMONARY EMBOLISM
     Dosage: 0.1 MG/KG/H

REACTIONS (2)
  - Epistaxis [Recovered/Resolved]
  - Infusion site haemorrhage [Recovered/Resolved]
